FAERS Safety Report 4480300-X (Version None)
Quarter: 2004Q3

REPORT INFORMATION
  Report Type: 
  Country: None (occurrence: None)
  Receive Date: 20040923
  Receipt Date: 20040714
  Transmission Date: 20050211
  Serious: No
  Sender: FDA-Public Use
  Company Number: USA031255556

PATIENT
  Age: 69 Year
  Sex: Female
  Weight: 41 kg

DRUGS (5)
  1. EVISTA [Suspect]
     Indication: OSTEOPOROSIS
     Dates: start: 19990101, end: 20031223
  2. FORTEO [Suspect]
     Indication: OSTEOPOROSIS
     Dates: start: 20040108
  3. CALCIUM [Concomitant]
  4. SYNTHROID [Concomitant]
  5. FOSAMAX [Concomitant]

REACTIONS (7)
  - ANXIETY [None]
  - BALANCE DISORDER [None]
  - BONE DENSITY DECREASED [None]
  - DIZZINESS [None]
  - DRUG INEFFECTIVE [None]
  - INJECTION SITE HAEMORRHAGE [None]
  - MUSCLE CRAMP [None]
